FAERS Safety Report 16101533 (Version 1)
Quarter: 2019Q1

REPORT INFORMATION
  Report Type: Spontaneous
  Country: FR (occurrence: FR)
  Receive Date: 20190321
  Receipt Date: 20190321
  Transmission Date: 20190418
  Serious: Yes (Hospitalization, Other)
  Sender: FDA-Public Use
  Company Number: FR-PFIZER INC-HQWYE016205SEP07

PATIENT
  Sex: Female

DRUGS (9)
  1. OLMETEC [Suspect]
     Active Substance: OLMESARTAN MEDOXOMIL
     Indication: HYPERTENSION
     Dosage: DOSE AND FREQUENCY NOT SPECIFIED
     Route: 048
     Dates: start: 20070221
  2. FENOFIBRATE. [Concomitant]
     Active Substance: FENOFIBRATE
     Dosage: UNK
     Route: 048
     Dates: end: 20070328
  3. CORDARONE [Suspect]
     Active Substance: AMIODARONE HYDROCHLORIDE
     Indication: HYPERTENSION
     Dosage: DOSE AND FREQUENCY NOT SPECIFIED
     Route: 048
     Dates: end: 20070221
  4. PLAQUENIL [Suspect]
     Active Substance: HYDROXYCHLOROQUINE SULFATE
     Indication: CUTANEOUS LUPUS ERYTHEMATOSUS
     Dosage: UNK
     Route: 048
     Dates: start: 20070222
  5. FLECAINE [Suspect]
     Active Substance: FLECAINIDE
     Indication: EXTRASYSTOLES
     Dosage: UNK
     Route: 065
     Dates: start: 20070221, end: 20070328
  6. APROVEL [Concomitant]
     Active Substance: IRBESARTAN
     Dosage: UNK
     Route: 048
  7. CERVOXAN [Concomitant]
     Dosage: UNK
     Route: 048
  8. PLAQUENIL [Suspect]
     Active Substance: HYDROXYCHLOROQUINE SULFATE
     Dosage: 200 MG TABLET, DOSE AND FREQUENCY NOT SPECIFIED
     Route: 048
     Dates: start: 20070227, end: 20070303
  9. GINKGO EXTRACT\HEPTAMINOL\TROXERUTIN [Concomitant]
     Active Substance: GINKGO\HEPTAMINOL\TROXERUTIN
     Dosage: UNK
     Route: 048

REACTIONS (5)
  - Malaise [Not Recovered/Not Resolved]
  - Lupus-like syndrome [Unknown]
  - Erysipelas [Unknown]
  - Dermatitis exfoliative [Not Recovered/Not Resolved]
  - Face oedema [Unknown]

NARRATIVE: CASE EVENT DATE: 20061102
